FAERS Safety Report 24205556 (Version 1)
Quarter: 2024Q3

REPORT INFORMATION
  Report Type: Spontaneous
  Country: CN (occurrence: CN)
  Receive Date: 20240813
  Receipt Date: 20240813
  Transmission Date: 20241017
  Serious: Yes (Hospitalization)
  Sender: NOVARTIS
  Company Number: CN-002147023-NVSC2024CN163973

PATIENT
  Age: 69 Year
  Sex: Female
  Weight: 64 kg

DRUGS (3)
  1. DABRAFENIB [Suspect]
     Active Substance: DABRAFENIB
     Indication: Neoplasm
     Dosage: 150 MG, Q12H
     Route: 065
     Dates: start: 20240627
  2. DABRAFENIB [Suspect]
     Active Substance: DABRAFENIB
     Dosage: 75 MG, BID (Q12H)
     Route: 048
     Dates: start: 20240801, end: 20240801
  3. TRAMETINIB [Concomitant]
     Active Substance: TRAMETINIB
     Indication: Neoplasm
     Dosage: 2 MG, QD
     Route: 048
     Dates: start: 20240627, end: 20240807

REACTIONS (3)
  - Tenderness [Unknown]
  - Pyrexia [Recovered/Resolved]
  - Rash erythematous [Unknown]

NARRATIVE: CASE EVENT DATE: 20240724
